FAERS Safety Report 7992357-X (Version None)
Quarter: 2011Q4

REPORT INFORMATION
  Report Type: 
  Country: None (occurrence: None)
  Receive Date: 20111219
  Receipt Date: 20101109
  Transmission Date: 20120403
  Serious: No
  Sender: FDA-Public Use
  Company Number: US-ASTRAZENECA-2010SE53965

PATIENT

DRUGS (3)
  1. CRESTOR [Suspect]
     Route: 048
  2. HALDOL [Concomitant]
  3. RESPERIDOL [Concomitant]

REACTIONS (1)
  - LIPIDS ABNORMAL [None]
